FAERS Safety Report 7679537-8 (Version None)
Quarter: 2011Q3

REPORT INFORMATION
  Report Type: 
  Country: None (occurrence: None)
  Receive Date: 20110812
  Receipt Date: 20110801
  Transmission Date: 20111222
  Serious: Yes (Other)
  Sender: FDA-Public Use
  Company Number: PL-BRISTOL-MYERS SQUIBB COMPANY-15966740

PATIENT

DRUGS (1)
  1. TRAZODONE HCL [Suspect]

REACTIONS (1)
  - SEROTONIN SYNDROME [None]
